FAERS Safety Report 8231658-7 (Version None)
Quarter: 2012Q1

REPORT INFORMATION
  Report Type: 
  Country: None (occurrence: None)
  Receive Date: 20120323
  Receipt Date: 20120319
  Transmission Date: 20120608
  Serious: Yes (Hospitalization)
  Sender: FDA-Public Use
  Company Number: US-PFIZER INC-2012048635

PATIENT
  Sex: Male
  Weight: 81.633 kg

DRUGS (6)
  1. RAPAMUNE [Suspect]
     Indication: LIVER TRANSPLANT
     Dosage: 1 MG, 2X/DAY
     Route: 048
     Dates: start: 20110912
  2. RAPAMUNE [Suspect]
     Indication: IMMUNOSUPPRESSION
  3. PREDNISONE [Concomitant]
     Indication: IMMUNOSUPPRESSION
     Dosage: 12.5 MG DAILY
     Dates: start: 20110731
  4. COUMADIN [Concomitant]
     Indication: DEEP VEIN THROMBOSIS
     Dosage: 3MG DAILY
     Dates: start: 20111020
  5. METOPROLOL [Concomitant]
     Indication: HYPERTENSION
     Dosage: 37.5 MG, 2X/DAY
  6. LASIX [Concomitant]
     Indication: OEDEMA PERIPHERAL
     Dosage: 20MG DAILY AS NEEDED
     Dates: start: 20111227

REACTIONS (1)
  - HIP FRACTURE [None]
